FAERS Safety Report 9382104 (Version 2)
Quarter: 2013Q3

REPORT INFORMATION
  Report Type: Spontaneous
  Country: US (occurrence: US)
  Receive Date: 20130703
  Receipt Date: 20130709
  Transmission Date: 20140515
  Serious: Yes (Death, Hospitalization, Other)
  Sender: FDA-Public Use
  Company Number: US-JNJFOC-20130618864

PATIENT
  Age: 85 Year
  Sex: Female
  Weight: 46 kg

DRUGS (1)
  1. XARELTO [Suspect]
     Indication: DEEP VEIN THROMBOSIS
     Dosage: STRENGTH: 15 MG, FREQUENCY: 1
     Route: 048
     Dates: start: 20130328, end: 20130329

REACTIONS (5)
  - Subarachnoid haemorrhage [Fatal]
  - Cerebral haematoma [Fatal]
  - Intraventricular haemorrhage [Fatal]
  - Subdural haematoma [Fatal]
  - Encephalopathy [Not Recovered/Not Resolved]
